FAERS Safety Report 8963098 (Version 1)
Quarter: 2012Q4

REPORT INFORMATION
  Report Type: Report from Study
  Country: CA (occurrence: CA)
  Receive Date: 20121213
  Receipt Date: 20121213
  Transmission Date: 20130627
  Serious: Yes (Other)
  Sender: FDA-Public Use
  Company Number: CA-ROCHE-1167282

PATIENT
  Sex: Male
  Weight: 79.5 kg

DRUGS (2)
  1. OMALIZUMAB [Suspect]
     Indication: ASTHMA
     Route: 058
     Dates: start: 20051128
  2. STEROIDS - UNKNOWN TYPE [Concomitant]

REACTIONS (7)
  - Hypersensitivity [Not Recovered/Not Resolved]
  - Sneezing [Unknown]
  - Chest discomfort [Unknown]
  - Wheezing [Unknown]
  - Influenza [Unknown]
  - Nasopharyngitis [Unknown]
  - Sinusitis [Recovered/Resolved]
